FAERS Safety Report 21671971 (Version 1)
Quarter: 2022Q4

REPORT INFORMATION
  Report Type: Spontaneous
  Country: US (occurrence: US)
  Receive Date: 20221202
  Receipt Date: 20221202
  Transmission Date: 20230113
  Serious: Yes (Other)
  Sender: FDA-Public Use
  Company Number: US-TEVA-2022-US-2830398

PATIENT
  Age: 55 Year
  Sex: Female

DRUGS (1)
  1. COPAXONE [Suspect]
     Active Substance: GLATIRAMER ACETATE
     Indication: Product used for unknown indication
     Dosage: UNIT DOSE: 20 MG/ML
     Route: 065

REACTIONS (6)
  - Seizure [Unknown]
  - Pain of skin [Unknown]
  - Eczema [Unknown]
  - Muscular weakness [Unknown]
  - Muscle atrophy [Unknown]
  - Back pain [Unknown]
